FAERS Safety Report 8406962 (Version 3)
Quarter: 2014Q1

REPORT INFORMATION
  Report Type: Spontaneous
  Country: US (occurrence: US)
  Receive Date: 20120215
  Receipt Date: 20140107
  Transmission Date: 20141002
  Serious: Yes (Death, Hospitalization)
  Sender: FDA-Public Use
  Company Number: US-GLAXOSMITHKLINE-A0913503A

PATIENT
  Age: 64 Year
  Sex: Female

DRUGS (14)
  1. AVANDIA [Suspect]
     Indication: DIABETES MELLITUS
     Dosage: 4MG TWICE PER DAY
     Route: 048
     Dates: start: 200011, end: 200703
  2. METOPROLOL [Concomitant]
  3. LANSOPRAZOLE [Concomitant]
  4. ATROVENT [Concomitant]
  5. LIPITOR [Concomitant]
  6. NORVASC [Concomitant]
  7. ELAVIL [Concomitant]
  8. PREMARIN [Concomitant]
  9. CARDIZEM [Concomitant]
  10. ALBUTEROL [Concomitant]
  11. BECONASE [Concomitant]
  12. PROTONIX [Concomitant]
  13. SPIRIVA [Concomitant]
  14. ADVAIR [Concomitant]

REACTIONS (3)
  - Cardiac failure congestive [Fatal]
  - Acute coronary syndrome [Unknown]
  - Cardiovascular disorder [Unknown]
